FAERS Safety Report 8100095-8 (Version None)
Quarter: 2012Q1

REPORT INFORMATION
  Report Type: 
  Country: None (occurrence: None)
  Receive Date: 20120129
  Receipt Date: 20111128
  Transmission Date: 20120608
  Serious: No
  Sender: FDA-Public Use
  Company Number: US-ABBOTT-11P-163-0878822-00

PATIENT
  Sex: Female
  Weight: 71.732 kg

DRUGS (8)
  1. LEXAPRO [Concomitant]
     Indication: HORMONE LEVEL ABNORMAL
  2. VITAMIN D [Concomitant]
     Indication: VITAMIN SUPPLEMENTATION
  3. SINGULAIR [Concomitant]
     Indication: HYPERSENSITIVITY
  4. WELLBUTRIN [Concomitant]
     Indication: HORMONE LEVEL ABNORMAL
  5. HUMIRA [Suspect]
     Indication: CROHN'S DISEASE
     Dates: start: 20111001
  6. ZOCOR [Concomitant]
     Indication: BLOOD CHOLESTEROL INCREASED
  7. VITAMIN TAB [Concomitant]
     Indication: VITAMIN SUPPLEMENTATION
  8. HUMIRA [Suspect]
     Indication: RHEUMATOID ARTHRITIS

REACTIONS (6)
  - HEADACHE [None]
  - PRODUCTIVE COUGH [None]
  - RHINITIS [None]
  - UPPER-AIRWAY COUGH SYNDROME [None]
  - COUGH [None]
  - FATIGUE [None]
